FAERS Safety Report 4294546-7 (Version None)
Quarter: 2004Q1

REPORT INFORMATION
  Report Type: 
  Country: None (occurrence: None)
  Receive Date: 20040213
  Receipt Date: 20040205
  Transmission Date: 20041129
  Serious: Yes (Other)
  Sender: FDA-Public Use
  Company Number: PHNR2004AU00627

PATIENT
  Sex: Female

DRUGS (1)
  1. CLOZARIL [Suspect]
     Dosage: 12.5 - 175 MG/DAY
     Dates: start: 20020119, end: 20020101

REACTIONS (5)
  - CYTOMEGALOVIRUS INFECTION [None]
  - EOSINOPHIL COUNT INCREASED [None]
  - FEELING ABNORMAL [None]
  - MONOCYTE COUNT INCREASED [None]
  - PYREXIA [None]
